FAERS Safety Report 11074939 (Version 2)
Quarter: 2015Q2

REPORT INFORMATION
  Report Type: Spontaneous
  Country: US (occurrence: US)
  Receive Date: 20150429
  Receipt Date: 20150512
  Transmission Date: 20150821
  Serious: Yes (Other)
  Sender: FDA-Public Use
  Company Number: US-BAYER-2015-179997

PATIENT
  Age: 36 Year
  Sex: Female

DRUGS (1)
  1. SKYLA [Suspect]
     Active Substance: LEVONORGESTREL
     Indication: CONTRACEPTION
     Dosage: UNK
     Route: 015
     Dates: start: 20150212, end: 20150423

REACTIONS (4)
  - Pain [None]
  - Ectopic pregnancy with contraceptive device [None]
  - Genital haemorrhage [None]
  - Drug ineffective [None]
